FAERS Safety Report 7419193-7 (Version None)
Quarter: 2011Q2

REPORT INFORMATION
  Report Type: 
  Country: None (occurrence: None)
  Receive Date: 20110415
  Receipt Date: 20110321
  Transmission Date: 20111010
  Serious: No
  Sender: FDA-Public Use
  Company Number: US-B.I. PHARMACEUTICALS,INC./RIDGEFIELD-2011-BP-08686BP

PATIENT
  Age: 66 Year
  Sex: Female

DRUGS (12)
  1. POTASSIUM [Concomitant]
  2. ZOLOFT [Concomitant]
  3. SIMVASTATIN [Concomitant]
  4. PRADAXA [Suspect]
     Indication: PROTEIN S DEFICIENCY
     Dosage: 300 MG
     Route: 048
     Dates: start: 20110311
  5. AMITRIPTYLINE [Concomitant]
  6. LASIX [Concomitant]
  7. PRADAXA [Suspect]
     Indication: CEREBROVASCULAR ACCIDENT PROPHYLAXIS
  8. BENICAR [Concomitant]
  9. NEURONTIN [Concomitant]
  10. NEXIUM [Concomitant]
     Dosage: 40 MG
  11. LEVOTHYROXINE SODIUM [Concomitant]
  12. MUCINEX [Concomitant]

REACTIONS (2)
  - MUSCULAR WEAKNESS [None]
  - ASTHENIA [None]
